FAERS Safety Report 14581474 (Version 1)
Quarter: 2018Q1

REPORT INFORMATION
  Report Type: Spontaneous
  Country: SE (occurrence: SE)
  Receive Date: 20180228
  Receipt Date: 20180228
  Transmission Date: 20180509
  Serious: Yes (Other)
  Sender: FDA-Public Use
  Company Number: SE-BAUSCH-BL-2018-005138

PATIENT
  Age: 23 Year
  Sex: Female

DRUGS (5)
  1. PRONAXEN [Suspect]
     Active Substance: NAPROXEN
     Indication: DEPRESSED MOOD
     Route: 065
  2. PANOCOD [Suspect]
     Active Substance: ACETAMINOPHEN\CODEINE PHOSPHATE
     Indication: DEPRESSED MOOD
     Route: 065
  3. PANODIL [Suspect]
     Active Substance: ACETAMINOPHEN
     Indication: DEPRESSED MOOD
     Route: 065
  4. VENLAFAXINE [Suspect]
     Active Substance: VENLAFAXINE HYDROCHLORIDE
     Indication: DEPRESSED MOOD
     Route: 065
  5. LERGIGAN (PROMETHAZINE HYDROCHLORIDE) [Suspect]
     Active Substance: PROMETHAZINE HYDROCHLORIDE
     Indication: DEPRESSED MOOD
     Route: 065

REACTIONS (3)
  - Toxicity to various agents [Unknown]
  - Abdominal pain upper [Unknown]
  - Intentional self-injury [Unknown]

NARRATIVE: CASE EVENT DATE: 20180204
